FAERS Safety Report 6997335-5 (Version None)
Quarter: 2010Q3

REPORT INFORMATION
  Report Type: 
  Country: None (occurrence: None)
  Receive Date: 20100918
  Receipt Date: 20090930
  Transmission Date: 20110219
  Serious: No
  Sender: FDA-Public Use
  Company Number: US-WYE-H11363909

PATIENT
  Sex: Female
  Weight: 59.02 kg

DRUGS (3)
  1. PREMPRO [Suspect]
     Indication: HORMONE REPLACEMENT THERAPY
     Dosage: 1 TABLET (FREQUENCY UNSPECIFIED)
     Route: 048
     Dates: start: 20080401
  2. SYNTHROID [Concomitant]
  3. CORTEF [Concomitant]

REACTIONS (1)
  - SMEAR CERVIX ABNORMAL [None]
